FAERS Safety Report 8218941-6 (Version None)
Quarter: 2012Q1

REPORT INFORMATION
  Report Type: 
  Country: None (occurrence: None)
  Receive Date: 20120306
  Receipt Date: 20110926
  Transmission Date: 20120608
  Serious: Yes (Other)
  Sender: FDA-Public Use
  Company Number: US-006624

PATIENT
  Age: 80 Year
  Sex: Female

DRUGS (2)
  1. ISOVUE-370 [Suspect]
     Indication: PRODUCT USED FOR UNKNOWN INDICATION
  2. ISOVUE-370 [Suspect]
     Indication: CORONARY ARTERIAL STENT INSERTION

REACTIONS (2)
  - HYPERSENSITIVITY [None]
  - RENAL FAILURE [None]
